FAERS Safety Report 8321911-0 (Version None)
Quarter: 2012Q2

REPORT INFORMATION
  Report Type: 
  Country: None (occurrence: None)
  Receive Date: 20120430
  Receipt Date: 20120418
  Transmission Date: 20120825
  Serious: Yes (Hospitalization, Other)
  Sender: FDA-Public Use
  Company Number: KR-JNJFOC-20120102899

PATIENT
  Sex: Female

DRUGS (10)
  1. CANDESARTAN CILEXETIL [Concomitant]
     Dates: start: 20090317, end: 20091008
  2. INFLIXIMAB, RECOMBINANT [Suspect]
     Route: 042
     Dates: end: 20090827
  3. PREDNISOLONE [Concomitant]
     Indication: RHEUMATOID ARTHRITIS
  4. CELECOXIB [Concomitant]
     Indication: RHEUMATOID ARTHRITIS
     Dates: start: 20050312, end: 20091008
  5. GLIMEPIRIDE [Concomitant]
     Dates: start: 20090317, end: 20091008
  6. INFLIXIMAB, RECOMBINANT [Suspect]
     Indication: RHEUMATOID ARTHRITIS
     Route: 042
     Dates: start: 20090317
  7. METHOTREXATE [Concomitant]
     Indication: RHEUMATOID ARTHRITIS
     Dates: start: 20050216, end: 20091008
  8. FOLIC ACID [Concomitant]
     Indication: RHEUMATOID ARTHRITIS
     Dates: start: 20050216, end: 20091008
  9. ATORVASTATIN CALCIUM [Concomitant]
     Dates: start: 20090317, end: 20091008
  10. REBAMIPIDE [Concomitant]
     Dates: start: 20070220, end: 20091008

REACTIONS (1)
  - PERITONEAL TUBERCULOSIS [None]
